FAERS Safety Report 8769335 (Version 2)
Quarter: 2012Q4

REPORT INFORMATION
  Report Type: 
  Country: US (occurrence: US)
  Receive Date: 20120905
  Receipt Date: 20121226
  Transmission Date: 20130627
  Serious: Yes (Other)
  Sender: FDA-Public Use
  Company Number: US-ASTRAZENECA-2012SE65173

PATIENT
  Age: 82 Year
  Sex: Female

DRUGS (1)
  1. SYMBICORT PMDI [Suspect]
     Route: 055

REACTIONS (6)
  - Hearing impaired [Unknown]
  - Suicidal behaviour [Unknown]
  - Visual impairment [Unknown]
  - Asthma [Unknown]
  - Depressed mood [Unknown]
  - Intentional drug misuse [Unknown]
